APPROVED DRUG PRODUCT: DILTIAZEM HYDROCHLORIDE
Active Ingredient: DILTIAZEM HYDROCHLORIDE
Strength: 300MG
Dosage Form/Route: CAPSULE, EXTENDED RELEASE;ORAL
Application: A075116 | Product #004 | TE Code: AB3
Applicant: VALEANT PHARMACEUTICALS NORTH AMERICA LLC
Approved: Dec 23, 1999 | RLD: No | RS: No | Type: RX